FAERS Safety Report 4889040-6 (Version None)
Quarter: 2005Q4

REPORT INFORMATION
  Report Type: 
  Country: None (occurrence: None)
  Receive Date: 20051215
  Receipt Date: 20041215
  Transmission Date: 20060501
  Serious: Yes (Other)
  Sender: FDA-Public Use
  Company Number: 2004116292

PATIENT
  Sex: Female

DRUGS (2)
  1. BEXTRA [Suspect]
     Indication: ARTHRITIS
     Dosage: 20 MG (QD),TRANSDERMAL
     Route: 062
  2. CELEBREX [Suspect]
     Indication: ILL-DEFINED DISORDER
     Dosage: (200 MG,EVERY OTHER DAY),ORAL
     Route: 048
     Dates: start: 20041201

REACTIONS (2)
  - DYSPNOEA [None]
  - HEART RATE INCREASED [None]
